FAERS Safety Report 21881754 (Version 1)
Quarter: 2023Q1

REPORT INFORMATION
  Report Type: Spontaneous
  Country: US (occurrence: US)
  Receive Date: 20230119
  Receipt Date: 20230119
  Transmission Date: 20230417
  Serious: No
  Sender: FDA-Public Use
  Company Number: US-BIOVITRUM-2023US00884

PATIENT
  Sex: Female
  Weight: 8 kg

DRUGS (8)
  1. SYNAGIS [Suspect]
     Active Substance: PALIVIZUMAB
     Indication: Premature baby
  2. EPINEPHRINE [Concomitant]
     Active Substance: EPINEPHRINE
  3. SYNAGIS [Suspect]
     Active Substance: PALIVIZUMAB
     Indication: Illness
  4. SYNAGIS [Suspect]
     Active Substance: PALIVIZUMAB
     Indication: Low birth weight baby
  5. SYNAGIS [Suspect]
     Active Substance: PALIVIZUMAB
     Indication: Atrial septal defect
  6. SYNAGIS [Suspect]
     Active Substance: PALIVIZUMAB
     Indication: Bronchopulmonary dysplasia
  7. SYNAGIS [Suspect]
     Active Substance: PALIVIZUMAB
     Indication: Congenital viral hepatitis
  8. SYNAGIS [Suspect]
     Active Substance: PALIVIZUMAB
     Indication: Congenital hydronephrosis

REACTIONS (1)
  - COVID-19 [Not Recovered/Not Resolved]
